FAERS Safety Report 23473811 (Version 1)
Quarter: 2024Q1

REPORT INFORMATION
  Report Type: Spontaneous
  Country: US (occurrence: US)
  Receive Date: 20240203
  Receipt Date: 20240203
  Transmission Date: 20240410
  Serious: Yes (Death)
  Sender: FDA-Public Use
  Company Number: US-UROGEN PHARMA LTD.-2024-UGN-000015

PATIENT

DRUGS (7)
  1. JELMYTO [Suspect]
     Active Substance: MITOMYCIN
     Indication: Transitional cell cancer of the renal pelvis and ureter
     Dosage: UNK, EVERY 2 WEEKS (INSTILLATION)
     Route: 065
  2. JELMYTO [Suspect]
     Active Substance: MITOMYCIN
     Dosage: UNK, EVERY 2 WEEKS (INSTILLATION)
     Route: 065
  3. JELMYTO [Suspect]
     Active Substance: MITOMYCIN
     Dosage: UNK, EVERY 2 WEEKS (INSTILLATION)
     Route: 065
  4. JELMYTO [Suspect]
     Active Substance: MITOMYCIN
     Dosage: UNK, EVERY 2 WEEKS (INSTILLATION)
     Route: 065
  5. JELMYTO [Suspect]
     Active Substance: MITOMYCIN
     Dosage: UNK, EVERY 2 WEEKS (INSTILLATION)
     Route: 065
  6. JELMYTO [Suspect]
     Active Substance: MITOMYCIN
     Dosage: UNK, EVERY 2 WEEKS (INSTILLATION)
     Route: 065
  7. JELMYTO [Suspect]
     Active Substance: MITOMYCIN
     Dosage: UNK, EVERY 2 WEEKS (INSTILLATION)
     Route: 065

REACTIONS (4)
  - Death [Fatal]
  - Disease complication [Unknown]
  - Inappropriate schedule of product administration [Unknown]
  - Drug ineffective [Unknown]
